FAERS Safety Report 10249910 (Version 2)
Quarter: 2014Q2

REPORT INFORMATION
  Report Type: Spontaneous
  Country: DE (occurrence: DE)
  Receive Date: 20140620
  Receipt Date: 20140620
  Transmission Date: 20141212
  Serious: Yes (Other)
  Sender: FDA-Public Use
  Company Number: DE-AMGEN INC.-DEUSP2012081430

PATIENT
  Age: 68 Year
  Sex: Female
  Weight: 58 kg

DRUGS (3)
  1. PROLIA [Suspect]
     Indication: OSTEOPOROSIS
     Dosage: 1 DF, UNK
     Route: 058
     Dates: start: 20121128
  2. IDEOS [Concomitant]
     Dosage: 2X1
  3. L-THYROXIN [Concomitant]

REACTIONS (3)
  - Autoimmune thyroiditis [Unknown]
  - Sleep disorder [Unknown]
  - Pruritus generalised [Recovering/Resolving]
